FAERS Safety Report 9375472 (Version 1)
Quarter: 2013Q2

REPORT INFORMATION
  Report Type: Spontaneous
  Country: IT (occurrence: IT)
  Receive Date: 20130628
  Receipt Date: 20130628
  Transmission Date: 20140414
  Serious: Yes (Death)
  Sender: FDA-Public Use
  Company Number: IT-GLAXOSMITHKLINE-B0903753A

PATIENT
  Age: 80 Year
  Sex: Female

DRUGS (2)
  1. VOTRIENT [Suspect]
     Indication: RENAL NEOPLASM
  2. RANITIDINE [Concomitant]

REACTIONS (2)
  - Hepatitis acute [Fatal]
  - Renal failure acute [Fatal]
